FAERS Safety Report 5466545-0 (Version None)
Quarter: 2007Q3

REPORT INFORMATION
  Report Type: 
  Country: None (occurrence: None)
  Receive Date: 20070820
  Receipt Date: 20070611
  Transmission Date: 20080115
  Serious: No
  Sender: FDA-Public Use
  Company Number: WAES 0706USA01918

PATIENT
  Age: 47 Year
  Sex: Female

DRUGS (2)
  1. JANUVIA [Suspect]
     Indication: HYPERGLYCAEMIA
     Dosage: 100 MG DAILY PO
     Route: 048
     Dates: start: 20070301
  2. METFORMIN [Concomitant]

REACTIONS (7)
  - ARTHRALGIA [None]
  - DYSGEUSIA [None]
  - GLOSSODYNIA [None]
  - HEADACHE [None]
  - MOUTH ULCERATION [None]
  - RASH [None]
  - RHINORRHOEA [None]
